FAERS Safety Report 17800300 (Version 30)
Quarter: 2025Q2

REPORT INFORMATION
  Report Type: Report from Study
  Country: US (occurrence: US)
  Receive Date: 20200519
  Receipt Date: 20250415
  Transmission Date: 20250717
  Serious: Yes (Hospitalization, Other)
  Sender: TAKEDA
  Company Number: US-SHIRE-US202016644

PATIENT
  Age: 52 Year
  Sex: Female
  Weight: 57 kg

DRUGS (55)
  1. .ALPHA.1-PROTEINASE INHIBITOR HUMAN [Suspect]
     Active Substance: .ALPHA.1-PROTEINASE INHIBITOR HUMAN
     Indication: Alpha-1 antitrypsin deficiency
     Dosage: UNK UNK, 1/WEEK
     Dates: start: 20180621
  2. .ALPHA.1-PROTEINASE INHIBITOR HUMAN [Suspect]
     Active Substance: .ALPHA.1-PROTEINASE INHIBITOR HUMAN
     Dosage: 3387 MILLIGRAM, 1/WEEK
     Dates: start: 20180625
  3. .ALPHA.1-PROTEINASE INHIBITOR HUMAN [Suspect]
     Active Substance: .ALPHA.1-PROTEINASE INHIBITOR HUMAN
     Dosage: 3345 MILLIGRAM, 1/WEEK
  4. .ALPHA.1-PROTEINASE INHIBITOR HUMAN [Suspect]
     Active Substance: .ALPHA.1-PROTEINASE INHIBITOR HUMAN
     Dosage: 3390 MILLIGRAM, 1/WEEK
  5. .ALPHA.1-PROTEINASE INHIBITOR HUMAN [Suspect]
     Active Substance: .ALPHA.1-PROTEINASE INHIBITOR HUMAN
     Dosage: UNK UNK, 1/WEEK
  6. .ALPHA.1-PROTEINASE INHIBITOR HUMAN [Suspect]
     Active Substance: .ALPHA.1-PROTEINASE INHIBITOR HUMAN
     Dosage: 60 MILLIGRAM/KILOGRAM, 1/WEEK
  7. DIPHENHYDRAMINE [Concomitant]
     Active Substance: DIPHENHYDRAMINE
  8. ACETAMINOPHEN\HYDROCODONE [Concomitant]
     Active Substance: ACETAMINOPHEN\HYDROCODONE
  9. IBUPROFEN [Concomitant]
     Active Substance: IBUPROFEN
  10. ALBUTEROL SULFATE [Concomitant]
     Active Substance: ALBUTEROL SULFATE
  11. DALIRESP [Concomitant]
     Active Substance: ROFLUMILAST
  12. Ester c [Concomitant]
  13. BACLOFEN [Concomitant]
     Active Substance: BACLOFEN
  14. EPINEPHRINE [Concomitant]
     Active Substance: EPINEPHRINE
  15. SODIUM CHLORIDE [Concomitant]
     Active Substance: SODIUM CHLORIDE
  16. NYSTATIN [Concomitant]
     Active Substance: NYSTATIN
  17. WIXELA INHUB [Concomitant]
     Active Substance: FLUTICASONE PROPIONATE\SALMETEROL XINAFOATE
  18. FLUTICASONE PROPIONATE [Concomitant]
     Active Substance: FLUTICASONE PROPIONATE
  19. ADDERALL [Concomitant]
     Active Substance: AMPHETAMINE ASPARTATE\AMPHETAMINE SULFATE\DEXTROAMPHETAMINE SACCHARATE\DEXTROAMPHETAMINE SULFATE
  20. OXYGEN [Concomitant]
     Active Substance: OXYGEN
  21. CHONDROITIN SULFATE (BOVINE)\GLUCOSAMINE HYDROCHLORIDE [Concomitant]
     Active Substance: CHONDROITIN SULFATE (BOVINE)\GLUCOSAMINE HYDROCHLORIDE
  22. FISH OIL [Concomitant]
     Active Substance: FISH OIL
  23. VITAMIN D [Concomitant]
     Active Substance: VITAMIN D NOS
  24. SELENIUM [Concomitant]
     Active Substance: SELENIUM
  25. INCRUSE ELLIPTA [Concomitant]
     Active Substance: UMECLIDINIUM BROMIDE
  26. LIDOCAINE [Concomitant]
     Active Substance: LIDOCAINE
  27. MUCINEX [Concomitant]
     Active Substance: GUAIFENESIN
  28. FOLIC ACID\IRON [Concomitant]
     Active Substance: FOLIC ACID\IRON
  29. MINERALS\VITAMINS [Concomitant]
     Active Substance: MINERALS\VITAMINS
  30. INCRUSE ELLIPTA [Concomitant]
     Active Substance: UMECLIDINIUM BROMIDE
     Indication: Product used for unknown indication
  31. FLONASE [Concomitant]
     Active Substance: FLUTICASONE PROPIONATE
  32. VENTOLIN [Concomitant]
     Active Substance: ALBUTEROL SULFATE
  33. DULERA [Concomitant]
     Active Substance: FORMOTEROL FUMARATE DIHYDRATE\MOMETASONE FUROATE
  34. BUSPIRONE [Concomitant]
     Active Substance: BUSPIRONE HYDROCHLORIDE
  35. LEXAPRO [Concomitant]
     Active Substance: ESCITALOPRAM OXALATE
     Indication: Product used for unknown indication
  36. FOSAMAX [Concomitant]
     Active Substance: ALENDRONATE SODIUM
     Indication: Product used for unknown indication
  37. MAGNESIUM [Concomitant]
     Active Substance: MAGNESIUM
  38. ALBUTEROL SULFATE [Concomitant]
     Active Substance: ALBUTEROL SULFATE
  39. AMOXICILLIN [Concomitant]
     Active Substance: AMOXICILLIN
  40. ASTEPRO [Concomitant]
     Active Substance: AZELASTINE HYDROCHLORIDE
  41. CLAVULANATE POTASSIUM [Concomitant]
     Active Substance: CLAVULANATE POTASSIUM
  42. HYDROCODONE [Concomitant]
     Active Substance: HYDROCODONE
  43. DOXYCYCLINE [Concomitant]
     Active Substance: DOXYCYCLINE
  44. PREDNISONE [Concomitant]
     Active Substance: PREDNISONE
  45. TRELEGY ELLIPTA [Concomitant]
     Active Substance: FLUTICASONE FUROATE\UMECLIDINIUM BROMIDE\VILANTEROL TRIFENATATE
  46. MORPHINE [Concomitant]
     Active Substance: MORPHINE
  47. MORPHINE SULFATE [Concomitant]
     Active Substance: MORPHINE SULFATE
  48. DIPHENHYDRAMINE HYDROCHLORIDE [Concomitant]
     Active Substance: DIPHENHYDRAMINE HYDROCHLORIDE
  49. DOXYCYCLINE HYCLATE [Concomitant]
     Active Substance: DOXYCYCLINE HYCLATE
  50. AUGMENTIN [Concomitant]
     Active Substance: AMOXICILLIN\CLAVULANATE POTASSIUM
  51. Coq [Concomitant]
  52. ZYRTEC [Concomitant]
     Active Substance: CETIRIZINE HYDROCHLORIDE
  53. MINERALS\VITAMINS [Concomitant]
     Active Substance: MINERALS\VITAMINS
  54. MAGNESIUM OXIDE [Concomitant]
     Active Substance: MAGNESIUM OXIDE
  55. PROBIOTICS NOS [Concomitant]
     Active Substance: PROBIOTICS NOS

REACTIONS (45)
  - Pneumonia [Recovering/Resolving]
  - Pulmonary congestion [Unknown]
  - Contusion [Unknown]
  - Urinary tract infection [Unknown]
  - Dysuria [Unknown]
  - Mass [Unknown]
  - Constipation [Unknown]
  - Vaginal discharge [Recovering/Resolving]
  - Head discomfort [Unknown]
  - Abdominal pain lower [Recovering/Resolving]
  - Musculoskeletal chest pain [Unknown]
  - Respiratory tract infection [Recovering/Resolving]
  - COVID-19 [Unknown]
  - Pain in extremity [Unknown]
  - Arthritis [Unknown]
  - Nasal congestion [Not Recovered/Not Resolved]
  - Oral candidiasis [Not Recovered/Not Resolved]
  - Candida infection [Unknown]
  - Coating in mouth [Unknown]
  - Animal bite [Unknown]
  - Respiratory tract congestion [Recovering/Resolving]
  - Sinus congestion [Unknown]
  - Skin mass [Unknown]
  - Axillary pain [Unknown]
  - Pyrexia [Recovering/Resolving]
  - Anxiety [Unknown]
  - Oropharyngeal pain [Unknown]
  - Eye discharge [Unknown]
  - Productive cough [Unknown]
  - Tooth fracture [Unknown]
  - Product dose omission issue [Unknown]
  - Post-acute COVID-19 syndrome [Recovering/Resolving]
  - Chest discomfort [Unknown]
  - Sinusitis [Unknown]
  - Urticaria [Unknown]
  - Hypoaesthesia [Unknown]
  - Pruritus [Unknown]
  - Rhinorrhoea [Recovering/Resolving]
  - Bronchitis [Recovering/Resolving]
  - Back pain [Unknown]
  - Rash [Unknown]
  - Fatigue [Not Recovered/Not Resolved]
  - Dizziness [Unknown]
  - Dyspnoea [Unknown]
  - Nausea [Unknown]

NARRATIVE: CASE EVENT DATE: 20200803
